FAERS Safety Report 23100026 (Version 1)
Quarter: 2023Q4

REPORT INFORMATION
  Report Type: Spontaneous
  Country: US (occurrence: None)
  Receive Date: 20231020
  Receipt Date: 20231020
  Transmission Date: 20240110
  Serious: No
  Sender: FDA-Public Use
  Company Number: None

PATIENT
  Age: 25 Year
  Sex: Female

DRUGS (7)
  1. HUMIRA [Suspect]
     Active Substance: ADALIMUMAB
     Indication: Crohn^s disease
     Dosage: OTHER QUANTITY : 40MG/0.4ML;?OTHER FREQUENCY : EVERY 14 DAYS;?
     Route: 058
     Dates: start: 20230201
  2. PREDNISONE [Concomitant]
     Active Substance: PREDNISONE
  3. ALBUTEROL HFA INH [Concomitant]
  4. BUDERSONIDE [Concomitant]
  5. ONDANSETRON [Concomitant]
  6. FLONASE [Concomitant]
     Active Substance: FLUTICASONE PROPIONATE
  7. MUPIROCIN [Concomitant]

REACTIONS (5)
  - Injection site pruritus [None]
  - Injection site rash [None]
  - Urticaria [None]
  - Mass [None]
  - Pain [None]

NARRATIVE: CASE EVENT DATE: 20231010
